FAERS Safety Report 15579503 (Version 1)
Quarter: 2018Q4

REPORT INFORMATION
  Report Type: Spontaneous
  Country: US (occurrence: US)
  Receive Date: 20181030
  Receipt Date: 20181030
  Transmission Date: 20190205
  Serious: Yes (Hospitalization)
  Sender: FDA-Public Use
  Company Number: None

PATIENT
  Age: 67 Year
  Sex: Male
  Weight: 83 kg

DRUGS (1)
  1. SIMVASTATIN. [Suspect]
     Active Substance: SIMVASTATIN
     Route: 048
     Dates: start: 20050720, end: 20180706

REACTIONS (6)
  - Acute kidney injury [None]
  - Haemodialysis [None]
  - Dialysis [None]
  - Rhabdomyolysis [None]
  - Emergency care [None]
  - Heat stroke [None]

NARRATIVE: CASE EVENT DATE: 20180720
